FAERS Safety Report 10095063 (Version 3)
Quarter: 2014Q4

REPORT INFORMATION
  Report Type: Spontaneous
  Country: US (occurrence: US)
  Receive Date: 20140422
  Receipt Date: 20141125
  Transmission Date: 20150528
  Serious: Yes (Hospitalization)
  Sender: FDA-Public Use
  Company Number: US-BAYER-2014-058010

PATIENT
  Age: 38 Year
  Sex: Female
  Weight: 68.27 kg

DRUGS (3)
  1. MOTRIN [Concomitant]
     Active Substance: IBUPROFEN
  2. MIRENA [Suspect]
     Active Substance: LEVONORGESTREL
     Dosage: 20 MCG/24HR, CONT
     Route: 015
     Dates: start: 20110923, end: 20120619
  3. COLACE [Concomitant]
     Active Substance: DOCUSATE SODIUM

REACTIONS (13)
  - Device issue [None]
  - Depressed mood [None]
  - Emotional distress [None]
  - Internal injury [None]
  - Injury [None]
  - Device difficult to use [None]
  - Medical device discomfort [None]
  - Abdominal pain lower [None]
  - Depression [None]
  - Uterine perforation [None]
  - Genital haemorrhage [None]
  - Anxiety [None]
  - Fear [None]

NARRATIVE: CASE EVENT DATE: 201204
